FAERS Safety Report 12199316 (Version 1)
Quarter: 2016Q1

REPORT INFORMATION
  Report Type: Spontaneous
  Country: US (occurrence: US)
  Receive Date: 20160322
  Receipt Date: 20160322
  Transmission Date: 20160526
  Serious: No
  Sender: FDA-Public Use
  Company Number: US-B.I. PHARMACEUTICALS,INC./RIDGEFIELD-2016-BI-11398BP

PATIENT
  Age: 77 Year
  Sex: Female
  Weight: 75 kg

DRUGS (1)
  1. SPIRIVA [Suspect]
     Active Substance: TIOTROPIUM BROMIDE MONOHYDRATE
     Indication: CHRONIC OBSTRUCTIVE PULMONARY DISEASE
     Dosage: 18 MCG
     Route: 055
     Dates: start: 2010

REACTIONS (4)
  - Chills [Recovered/Resolved]
  - Oropharyngeal pain [Recovered/Resolved]
  - Dysphonia [Unknown]
  - Body temperature [Recovered/Resolved]

NARRATIVE: CASE EVENT DATE: 20160218
